FAERS Safety Report 8660981 (Version 3)
Quarter: 2013Q4

REPORT INFORMATION
  Report Type: Spontaneous
  Country: US (occurrence: US)
  Receive Date: 20120711
  Receipt Date: 20131107
  Transmission Date: 20140711
  Serious: Yes (Hospitalization)
  Sender: FDA-Public Use
  Company Number: US-009507513-1207USA000478

PATIENT
  Age: 57 Year
  Sex: Female

DRUGS (1)
  1. PEGINTRON [Suspect]
     Indication: HEPATITIS C
     Dosage: UNK, UNKNOWN
     Dates: start: 20110903

REACTIONS (2)
  - Blood disorder [Not Recovered/Not Resolved]
  - Underdose [Unknown]
